FAERS Safety Report 17217518 (Version 2)
Quarter: 2020Q2

REPORT INFORMATION
  Report Type: Spontaneous
  Country: CA (occurrence: CA)
  Receive Date: 20191231
  Receipt Date: 20200609
  Transmission Date: 20200713
  Serious: Yes (Other)
  Sender: FDA-Public Use
  Company Number: CA-AUROBINDO-AUR-APL-2019-058844

PATIENT
  Age: 43 Year
  Sex: Female

DRUGS (6)
  1. LAMIVUDINE. [Concomitant]
     Active Substance: LAMIVUDINE
     Indication: HIV INFECTION
     Dosage: UNK
     Route: 065
  2. ABACAVIR. [Interacting]
     Active Substance: ABACAVIR
     Indication: HIV INFECTION
     Dosage: UNK
     Route: 065
  3. VALPROIC ACID. [Interacting]
     Active Substance: VALPROIC ACID
     Indication: CEREBROVASCULAR ACCIDENT
     Dosage: 1250 MILLIGRAM, ONCE A DAY
     Route: 065
  4. EFAVIRENZ. [Suspect]
     Active Substance: EFAVIRENZ
     Indication: HIV INFECTION
     Dosage: UNK
     Route: 065
     Dates: start: 2016
  5. DOLUTEGRAVIR [Suspect]
     Active Substance: DOLUTEGRAVIR
     Indication: HIV INFECTION
     Dosage: 50 MILLIGRAM, ONCE A DAY
     Route: 065
  6. VALPROIC ACID. [Interacting]
     Active Substance: VALPROIC ACID
     Indication: SEIZURE
     Dosage: 250 MILLIGRAM, ONCE A DAY
     Route: 065

REACTIONS (5)
  - Drug interaction [Recovered/Resolved]
  - Drug level below therapeutic [Unknown]
  - Antiviral drug level below therapeutic [Recovered/Resolved]
  - Seizure [Recovered/Resolved]
  - Anticonvulsant drug level below therapeutic [Recovered/Resolved]

NARRATIVE: CASE EVENT DATE: 201807
